FAERS Safety Report 21336132 (Version 1)
Quarter: 2022Q3

REPORT INFORMATION
  Report Type: Spontaneous
  Country: JP (occurrence: JP)
  Receive Date: 20220915
  Receipt Date: 20220915
  Transmission Date: 20221027
  Serious: Yes (Other)
  Sender: FDA-Public Use
  Company Number: JP-JNJFOC-20211242023

PATIENT
  Age: 85 Year
  Sex: Male

DRUGS (2)
  1. ONEDURO [Suspect]
     Active Substance: FENTANYL
     Indication: Pain
     Dosage: DOSE UNKNOWN
     Route: 062
  2. ELOBIXIBAT [Concomitant]
     Active Substance: ELOBIXIBAT
     Indication: Product used for unknown indication
     Dosage: DOSE UNKNOWN, BEFORE MEALS
     Route: 048

REACTIONS (1)
  - Chronic kidney disease [Unknown]
